FAERS Safety Report 14770344 (Version 1)
Quarter: 2018Q2

REPORT INFORMATION
  Report Type: Other
  Country: NL (occurrence: NL)
  Receive Date: 20180417
  Receipt Date: 20180417
  Transmission Date: 20180711
  Serious: Yes (Death, Other)
  Sender: FDA-Public Use
  Company Number: NL-TAKEDA-2005-02627

PATIENT
  Age: 76 Year
  Sex: Female

DRUGS (9)
  1. DEXAMETHASONE. [Suspect]
     Active Substance: DEXAMETHASONE
     Indication: PLASMA CELL MYELOMA
     Dosage: 40 MG, QD
     Route: 065
     Dates: start: 20051215, end: 20051216
  2. FLUIMICIL [Concomitant]
     Active Substance: ACETYLCYSTEINE
     Dosage: UNK
     Route: 065
  3. AMOXI-CLAVULANICO [Concomitant]
     Active Substance: AMOXICILLIN\CLAVULANIC ACID
     Dosage: UNK
     Route: 065
  4. AUGMENTIN [Concomitant]
     Active Substance: AMOXICILLIN\CLAVULANATE POTASSIUM
     Dosage: 1200 MG, BID
     Route: 042
     Dates: start: 20051214, end: 20051219
  5. MORPHINE HYDROCHLORIDE [Concomitant]
     Active Substance: MORPHINE HYDROCHLORIDE
     Dosage: 1 MG, Q1HR
     Route: 065
     Dates: start: 20051217
  6. TRAMADOL. [Concomitant]
     Active Substance: TRAMADOL
     Indication: PAIN
     Dosage: 50 MG, QD
     Route: 048
  7. FRAXIPARIN [Concomitant]
     Active Substance: NADROPARIN CALCIUM
     Dosage: 0.3 ML, QD
     Route: 065
     Dates: start: 20051214, end: 20051219
  8. METOCLOPRAMIDE HYDROCHLORIDE. [Concomitant]
     Active Substance: METOCLOPRAMIDE HYDROCHLORIDE
     Dosage: 10 MG, TID
     Route: 065
     Dates: start: 20051215, end: 20051219
  9. VELCADE [Suspect]
     Active Substance: BORTEZOMIB
     Indication: PLASMA CELL MYELOMA
     Dosage: 2 MG, UNK
     Route: 042
     Dates: start: 20051215

REACTIONS (12)
  - Albumin urine present [Unknown]
  - Epilepsy [Unknown]
  - Cardiac failure [Unknown]
  - Haemoglobin decreased [Unknown]
  - General physical condition abnormal [Unknown]
  - Creatinine urine decreased [Unknown]
  - Seizure [Fatal]
  - Urea urine increased [Unknown]
  - Hypocalcaemia [Fatal]
  - Pneumonia [Unknown]
  - C-reactive protein increased [Unknown]
  - Sepsis [Unknown]

NARRATIVE: CASE EVENT DATE: 20051217
